FAERS Safety Report 7580145 (Version 3)
Quarter: 2012Q4

REPORT INFORMATION
  Report Type: 
  Country: DE (occurrence: DE)
  Receive Date: 20100910
  Receipt Date: 20121025
  Transmission Date: 20130627
  Serious: Yes (Death, Hospitalization)
  Sender: FDA-Public Use
  Company Number: DE-RANBAXY-2010RR-37991

PATIENT
  Age: 53 Year
  Sex: Female
  Weight: 55 kg

DRUGS (5)
  1. PARACETAMOL [Suspect]
     Indication: PYREXIA
     Dosage: 1000 mg, UNK
     Route: 048
     Dates: start: 20100616, end: 20100616
  2. PARACETAMOL [Suspect]
     Dosage: 1000 mg, UNK
     Route: 048
     Dates: start: 20100630, end: 20100630
  3. METHOTREXATE SODIUM [Suspect]
     Indication: RHEUMATOID ARTHRITIS
     Dosage: 15 mg, 1/week
     Route: 048
     Dates: start: 2000, end: 20100705
  4. MABTHERA [Suspect]
     Indication: RHEUMATOID ARTHRITIS
     Dosage: 1 cycle = 2 x 1000 mg, with a time interval of 14 days, at 16 weeks
     Route: 042
     Dates: start: 2009, end: 20100630
  5. PREDNISOLONE [Concomitant]
     Indication: RHEUMATOID ARTHRITIS
     Dosage: 20 mg, qd
     Route: 048
     Dates: start: 1997

REACTIONS (4)
  - Liver disorder [Recovered/Resolved]
  - Hepatic cirrhosis [None]
  - Osteopenia [None]
  - Iron overload [None]
